FAERS Safety Report 22735579 (Version 2)
Quarter: 2024Q1

REPORT INFORMATION
  Report Type: Spontaneous
  Country: US (occurrence: US)
  Receive Date: 20230721
  Receipt Date: 20240329
  Transmission Date: 20240410
  Serious: Yes (Life-Threatening, Hospitalization, Other)
  Sender: FDA-Public Use
  Company Number: US-MLMSERVICE-20230707-4388429-1

PATIENT
  Age: 47 Year
  Sex: Female

DRUGS (5)
  1. COLCHICINE [Interacting]
     Active Substance: COLCHICINE
     Indication: Product used for unknown indication
     Dosage: UNK
     Route: 065
  2. HYDROXYCHLOROQUINE [Interacting]
     Active Substance: HYDROXYCHLOROQUINE
     Indication: Product used for unknown indication
     Dosage: UNK
     Route: 065
  3. HYDROCORTISONE [Interacting]
     Active Substance: HYDROCORTISONE
     Indication: Product used for unknown indication
     Dosage: UNK
     Route: 065
  4. METHYLPREDNISOLONE [Interacting]
     Active Substance: METHYLPREDNISOLONE
     Indication: Immunosuppressant drug therapy
     Dosage: UNK
     Route: 065
  5. AZATHIOPRINE [Interacting]
     Active Substance: AZATHIOPRINE
     Indication: Immunosuppressant drug therapy
     Dosage: UNK
     Route: 065

REACTIONS (9)
  - Acute kidney injury [Unknown]
  - Enterococcal bacteraemia [Unknown]
  - Hypotension [Unknown]
  - Pancytopenia [Unknown]
  - Proteus infection [Unknown]
  - Respiratory acidosis [Recovering/Resolving]
  - Respiratory failure [Recovering/Resolving]
  - Myopathy [Recovered/Resolved]
  - Drug interaction [Unknown]
